FAERS Safety Report 8947524 (Version 1)
Quarter: 2012Q4

REPORT INFORMATION
  Report Type: Report from Study
  Country: US (occurrence: US)
  Receive Date: 20121204
  Receipt Date: 20121204
  Transmission Date: 20130627
  Serious: Yes (Hospitalization, Other)
  Sender: FDA-Public Use
  Company Number: US-CELGENEUS-AX108-10-0343

PATIENT
  Age: 57 Year
  Sex: Female
  Weight: 66.2 kg

DRUGS (8)
  1. ABRAXANE [Suspect]
     Indication: BREAST CANCER
     Dosage: 174 Milligram
     Route: 065
     Dates: start: 20100405
  2. AVASTIN [Suspect]
     Indication: BREAST CANCER
     Dosage: 1004 Milligram
     Route: 065
     Dates: start: 20100423
  3. CARBOPLATIN [Suspect]
     Indication: BREAST CANCER
     Dosage: 715 Milligram
     Route: 065
     Dates: start: 20100423
  4. VITAMIN B COMPLEX [Concomitant]
     Indication: NUTRITIONAL SUPPLEMENT
     Dosage: 1 Tablet
     Route: 048
     Dates: start: 200904
  5. COMPAZINE [Concomitant]
     Indication: NAUSEA
     Dosage: 40 Milligram
     Route: 048
     Dates: start: 20100331
  6. ONDANSETRON [Concomitant]
     Indication: NAUSEA
     Dosage: 16 Milligram
     Route: 048
     Dates: start: 20100423
  7. ONDANSETRON [Concomitant]
     Dosage: 12 Milligram
     Route: 041
     Dates: start: 20100623, end: 20100625
  8. DEXAMETHASONE [Concomitant]
     Indication: NAUSEA
     Dosage: 24 Milligram
     Route: 048
     Dates: start: 20100423

REACTIONS (1)
  - Gastrointestinal haemorrhage [Recovered/Resolved]
